FAERS Safety Report 18927157 (Version 1)
Quarter: 2021Q1

REPORT INFORMATION
  Report Type: Spontaneous
  Country: US (occurrence: US)
  Receive Date: 20210222
  Receipt Date: 20210222
  Transmission Date: 20210420
  Serious: Yes (Other)
  Sender: FDA-Public Use
  Company Number: None

PATIENT
  Age: 62 Year
  Sex: Female
  Weight: 67.5 kg

DRUGS (2)
  1. VITAMIN D [Concomitant]
     Active Substance: VITAMIN D NOS
  2. CETIRIZINE [Suspect]
     Active Substance: CETIRIZINE HYDROCHLORIDE
     Indication: MULTIPLE ALLERGIES
     Dosage: ?          QUANTITY:1 TABLET(S);?
     Route: 048
     Dates: start: 20190701, end: 20210213

REACTIONS (7)
  - Diarrhoea [None]
  - Adverse food reaction [None]
  - Pruritus [None]
  - Urticaria [None]
  - Abdominal pain upper [None]
  - Poor quality sleep [None]
  - Withdrawal syndrome [None]

NARRATIVE: CASE EVENT DATE: 20210215
